FAERS Safety Report 7997665-4 (Version None)
Quarter: 2011Q4

REPORT INFORMATION
  Report Type: 
  Country: None (occurrence: None)
  Receive Date: 20111221
  Receipt Date: 20111213
  Transmission Date: 20120403
  Serious: Yes (Other)
  Sender: FDA-Public Use
  Company Number: US-JNJFOC-20111206483

PATIENT
  Age: 61 Year
  Sex: Female
  Weight: 45.36 kg

DRUGS (3)
  1. MINOXIDIL [Suspect]
     Dosage: CAPFUL, 1-2 TIME A DAY
     Route: 061
     Dates: start: 20100101, end: 20100101
  2. MINOXIDIL [Suspect]
     Indication: ALOPECIA
     Route: 061
     Dates: start: 20110101
  3. PREMARIN [Concomitant]
     Indication: HORMONE REPLACEMENT THERAPY
     Route: 065
     Dates: start: 19980101

REACTIONS (2)
  - WRONG DRUG ADMINISTERED [None]
  - BLOOD PRESSURE DECREASED [None]
